FAERS Safety Report 9617804 (Version 1)
Quarter: 2013Q4

REPORT INFORMATION
  Report Type: Spontaneous
  Country: IT (occurrence: None)
  Receive Date: 20131009
  Receipt Date: 20131009
  Transmission Date: 20140711
  Serious: Yes (Other)
  Sender: FDA-Public Use
  Company Number: FK201304479

PATIENT
  Age: 69 Year
  Sex: Male

DRUGS (5)
  1. EPIRUBICIN [Suspect]
     Indication: LEIOMYOSARCOMA
     Dosage: 60MG/M2, ON DAYS 1 AND 2 REPEATED EVERY 21 DAYS, INTRAVENOUS (NOT OTHERWISE SPECIFIED)
  2. GEMCITABINE (MANUFACTURER UNKNOWN)(GEMCITABINE)(GEMCITABINE) [Suspect]
     Indication: LEIOMYOSARCOMA
     Dosage: 1, G/M2 ON DAYS 1, 8, AND 15 REPEATED EVERY
     Dates: end: 200810
  3. IFOSFAMIDE [Suspect]
     Indication: LEIOMYOSARCOMA
     Dosage: 3, G/M2 ON DAYS 1-3 REPEATED EVERY 21 DAYS, INTRAVENOUS (NOT OTHERWISE SPECIFIED)
  4. TRABECTEDIN [Suspect]
     Indication: LEIOMYOSARCOMA
     Dosage: 1.3 MG/M2, /24 H INFUSION
     Dates: end: 201012
  5. DEXAMETHASONE [Concomitant]

REACTIONS (8)
  - Mucosal inflammation [None]
  - Neutropenia [None]
  - Thrombocytopenia [None]
  - Leukopenia [None]
  - Fatigue [None]
  - Anaemia [None]
  - Pyrexia [None]
  - Aspartate aminotransferase increased [None]
